FAERS Safety Report 6063679-7 (Version None)
Quarter: 2009Q1

REPORT INFORMATION
  Report Type: 
  Country: None (occurrence: None)
  Receive Date: 20090129
  Receipt Date: 20090120
  Transmission Date: 20090719
  Serious: Yes (Disabling)
  Sender: FDA-Public Use
  Company Number: OSCN-PR-0804S-0196

PATIENT
  Sex: Female

DRUGS (3)
  1. OMNISCAN [Suspect]
     Indication: DRUG USE FOR UNKNOWN INDICATION
     Dosage: SINGE DOSE; SINGLE DOSE; SINGLE DOSE
     Dates: start: 20051104, end: 20051104
  2. OMNISCAN [Suspect]
     Indication: DRUG USE FOR UNKNOWN INDICATION
     Dosage: SINGE DOSE; SINGLE DOSE; SINGLE DOSE
     Dates: start: 20051220, end: 20051220
  3. OMNISCAN [Suspect]
     Indication: DRUG USE FOR UNKNOWN INDICATION
     Dosage: SINGE DOSE; SINGLE DOSE; SINGLE DOSE
     Dates: start: 20060723, end: 20060723

REACTIONS (1)
  - NEPHROGENIC SYSTEMIC FIBROSIS [None]
